FAERS Safety Report 17475839 (Version 1)
Quarter: 2020Q1

REPORT INFORMATION
  Report Type: Spontaneous
  Country: RO (occurrence: RO)
  Receive Date: 20200228
  Receipt Date: 20200228
  Transmission Date: 20200409
  Serious: Yes (Death, Hospitalization, Other)
  Sender: FDA-Public Use
  Company Number: RO-ASTRAZENECA-2020SE28959

PATIENT
  Age: 57 Year
  Sex: Male

DRUGS (8)
  1. NITROMINT [Concomitant]
     Active Substance: NITROGLYCERIN
  2. INSULIN [Concomitant]
     Active Substance: INSULIN NOS
  3. BRILIQUE [Suspect]
     Active Substance: TICAGRELOR
     Indication: ACUTE MYOCARDIAL INFARCTION
     Route: 048
  4. ASA [Concomitant]
     Active Substance: ASPIRIN
     Indication: ACUTE MYOCARDIAL INFARCTION
  5. PRESTARIUM [Concomitant]
     Active Substance: PERINDOPRIL
  6. SPIRONOLACTONE. [Concomitant]
     Active Substance: SPIRONOLACTONE
  7. BRILIQUE [Suspect]
     Active Substance: TICAGRELOR
     Indication: STENT PLACEMENT
     Route: 048
  8. ASA [Concomitant]
     Active Substance: ASPIRIN
     Indication: STENT PLACEMENT

REACTIONS (3)
  - Death [Fatal]
  - Sepsis [Unknown]
  - Gangrene [Unknown]
